FAERS Safety Report 12718585 (Version 1)
Quarter: 2016Q3

REPORT INFORMATION
  Report Type: Report from Study
  Country: DE (occurrence: DE)
  Receive Date: 20160906
  Receipt Date: 20160906
  Transmission Date: 20161109
  Serious: Yes (Life-Threatening, Hospitalization)
  Sender: FDA-Public Use
  Company Number: DE-ALLERGAN-1667931US

PATIENT
  Age: 30 Year
  Sex: Female
  Weight: 68 kg

DRUGS (9)
  1. ARCASIN [Suspect]
     Active Substance: PENICILLIN V POTASSIUM
     Indication: TONSILLITIS
     Dosage: UNK
     Route: 048
     Dates: start: 19911211, end: 19911215
  2. PHENHYDAN [Suspect]
     Active Substance: PHENYTOIN
     Indication: EPILEPSY
     Dosage: 1 DF, TID
     Route: 048
     Dates: end: 19911215
  3. URBASON [Suspect]
     Active Substance: METHYLPREDNISOLONE
     Indication: RASH
     Dosage: UNK
     Route: 042
     Dates: start: 19911213, end: 19911215
  4. HOSTACYCLIN [Suspect]
     Active Substance: TETRACYCLINE HYDROCHLORIDE
     Indication: TONSILLITIS
     Dosage: UNK
     Route: 048
     Dates: start: 19911213, end: 19911215
  5. FORTECORTIN [Suspect]
     Active Substance: DEXAMETHASONE
     Indication: PROPHYLAXIS
     Dosage: 1 DF, TID
     Route: 048
     Dates: end: 19911212
  6. RIOPAN [Suspect]
     Active Substance: MAGALDRATE
     Indication: GASTRIC DISORDER
     Dosage: UNK
     Route: 048
     Dates: start: 19911216
  7. TIMONIL [Suspect]
     Active Substance: CARBAMAZEPINE
     Indication: EPILEPSY
     Dosage: UNK
     Route: 048
     Dates: start: 19911216
  8. SUCRALFATE - BP [Suspect]
     Active Substance: SUCRALFATE
     Indication: GASTRIC DISORDER
     Dosage: UNK
     Route: 048
     Dates: start: 19911123, end: 19911215
  9. REPELTIN [Suspect]
     Active Substance: TRIMEPRAZINE TARTRATE
     Indication: RASH
     Dosage: UNK
     Route: 048
     Dates: start: 19911216

REACTIONS (1)
  - Toxic epidermal necrolysis [Recovered/Resolved]

NARRATIVE: CASE EVENT DATE: 19911214
